FAERS Safety Report 5003241-8 (Version None)
Quarter: 2006Q2

REPORT INFORMATION
  Report Type: 
  Country: None (occurrence: None)
  Receive Date: 20060512
  Receipt Date: 20060504
  Transmission Date: 20061013
  Serious: Yes (Hospitalization)
  Sender: FDA-Public Use
  Company Number: 0600022US

PATIENT
  Age: 3 Year
  Sex: Male

DRUGS (3)
  1. BOTOX (BOTULINUM TOXIN TYPE A) POWDER FOR INJECTION [Suspect]
     Indication: MUSCLE SPASTICITY
     Dosage: 200 UNITS, SINGLE
     Dates: start: 20060412, end: 20060412
  2. BACLOFEN [Concomitant]
  3. KEPPRA [Concomitant]

REACTIONS (2)
  - HAEMOLYTIC URAEMIC SYNDROME [None]
  - VIRAL INFECTION [None]
